FAERS Safety Report 19684572 (Version 1)
Quarter: 2021Q3

REPORT INFORMATION
  Report Type: Spontaneous
  Country: US (occurrence: US)
  Receive Date: 20210810
  Receipt Date: 20210810
  Transmission Date: 20211014
  Serious: No
  Sender: FDA-Public Use
  Company Number: None

PATIENT

DRUGS (1)
  1. FENTANYL. [Suspect]
     Active Substance: FENTANYL
     Route: 061

REACTIONS (2)
  - Product outer packaging issue [None]
  - Product barcode issue [None]

NARRATIVE: CASE EVENT DATE: 20200910
